FAERS Safety Report 6399944-3 (Version None)
Quarter: 2009Q4

REPORT INFORMATION
  Report Type: 
  Country: None (occurrence: None)
  Receive Date: 20091008
  Receipt Date: 20091008
  Transmission Date: 20100525
  Serious: Yes (Hospitalization)
  Sender: FDA-Public Use
  Company Number: None

PATIENT
  Sex: Female

DRUGS (1)
  1. FENTANYL-100 [Suspect]
     Indication: ARTHRALGIA
     Dosage: 25MCG Q72H TRANSDERMAL
     Route: 062
     Dates: start: 20090306, end: 20090308

REACTIONS (1)
  - URINARY RETENTION [None]
